FAERS Safety Report 20070315 (Version 2)
Quarter: 2021Q4

REPORT INFORMATION
  Report Type: Report from Study
  Country: EG (occurrence: EG)
  Receive Date: 20211115
  Receipt Date: 20211122
  Transmission Date: 20220303
  Serious: Yes (Other)
  Sender: FDA-Public Use
  Company Number: EG-NOVARTISPH-NVSC2021EG256423

PATIENT
  Age: 35 Year
  Sex: Male

DRUGS (4)
  1. COSENTYX [Suspect]
     Active Substance: SECUKINUMAB
     Indication: Ankylosing spondylitis
     Dosage: 150 MG, QMO
     Route: 058
  2. COSENTYX [Suspect]
     Active Substance: SECUKINUMAB
     Dosage: 150 MG (EVERY ONE AND HALF MONTH OR TWO MONTHS)
     Route: 058
     Dates: start: 201801
  3. DEPOVIT B12 [Concomitant]
     Indication: Vitamin supplementation
     Dosage: 1 DF, PRN
     Route: 065
  4. ROYAL VIT G. [Concomitant]
     Indication: Vitamin supplementation
     Dosage: 1 DF, PRN
     Route: 065

REACTIONS (6)
  - Arthralgia [Not Recovered/Not Resolved]
  - Hypokinesia [Not Recovered/Not Resolved]
  - Fatigue [Recovering/Resolving]
  - Influenza [Recovered/Resolved]
  - Inappropriate schedule of product administration [Recovering/Resolving]
  - Off label use [Recovering/Resolving]

NARRATIVE: CASE EVENT DATE: 20180101
